FAERS Safety Report 11148909 (Version 1)
Quarter: 2015Q2

REPORT INFORMATION
  Report Type: Spontaneous
  Country: US (occurrence: US)
  Receive Date: 20150529
  Receipt Date: 20150529
  Transmission Date: 20150821
  Serious: Yes (Death, Other)
  Sender: FDA-Public Use
  Company Number: US-PFIZER INC-2008070824

PATIENT
  Age: 22 Year
  Sex: Male

DRUGS (25)
  1. METRONIDAZOLE. [Suspect]
     Active Substance: METRONIDAZOLE
     Indication: ANTIBIOTIC PROPHYLAXIS
  2. VECURONIUM [Concomitant]
     Active Substance: VECURONIUM BROMIDE
  3. LANSOPRAZOLE. [Concomitant]
     Active Substance: LANSOPRAZOLE
  4. METOPROLOL [Concomitant]
     Active Substance: METOPROLOL
  5. METRONIDAZOLE. [Suspect]
     Active Substance: METRONIDAZOLE
     Indication: SEPTIC SHOCK
     Dosage: 500 MG, 3X/DAY (EVERY 8 HOURS), CONTINUED FOR 4 DAYS
  6. PHENYLEPHRINE [Concomitant]
     Active Substance: PHENYLEPHRINE\PHENYLEPHRINE HYDROCHLORIDE
  7. CEFEPIME [Suspect]
     Active Substance: CEFEPIME\CEFEPIME HYDROCHLORIDE
     Dosage: 2 G, 2X/DAY (EVERY 12 HOURS)
     Route: 042
  8. NOREPINEPHRINE [Concomitant]
     Active Substance: NOREPINEPHRINE\NOREPINEPHRINE BITARTRATE
  9. CEFAZOLIN [Suspect]
     Active Substance: CEFAZOLIN
     Dosage: 1 G, EVERY 12 HOURS
  10. CEFEPIME [Suspect]
     Active Substance: CEFEPIME\CEFEPIME HYDROCHLORIDE
     Indication: PNEUMONIA
     Dosage: 2 G, 2X/DAY (EVERY 12 HOURS)
     Route: 042
  11. ASPIRINA [Concomitant]
     Active Substance: ASPIRIN
  12. CEFOXITIN [Suspect]
     Active Substance: CEFOXITIN\CEFOXITIN SODIUM
     Dosage: 1-G DOSE AT 16 HOURS POSTOPERATIVELY
  13. IMIPENEM [Suspect]
     Active Substance: IMIPENEM
     Indication: INFECTION
     Dosage: 250 MG, 4X/DAY (EVERY 6 HOURS, CONTINUED FOR 2 DAYS)
  14. DOCUSATE [Concomitant]
     Active Substance: DOCUSATE
  15. CEFAZOLIN [Suspect]
     Active Substance: CEFAZOLIN
     Indication: INFECTION
     Dosage: 1 G, EVERY 12 HOURS
  16. CEFOXITIN [Suspect]
     Active Substance: CEFOXITIN\CEFOXITIN SODIUM
     Indication: ANTIBIOTIC PROPHYLAXIS
     Dosage: 1-G DOSE BEFORE THE PROCEDURE
  17. CEFOXITIN [Suspect]
     Active Substance: CEFOXITIN\CEFOXITIN SODIUM
     Dosage: 1-G DOSE AT 12 HOURS POSTOPERATIVELY
  18. LEVOFLOXACIN. [Concomitant]
     Active Substance: LEVOFLOXACIN
     Indication: PNEUMONIA ASPIRATION
     Dosage: 500 MG, 1X/DAY
     Route: 042
  19. VANCOMYCIN [Concomitant]
     Active Substance: VANCOMYCIN
     Indication: PNEUMONIA
     Dosage: 1 G, 2X/DAY (EVERY 12 HOURS)
  20. MORPHINE [Concomitant]
     Active Substance: MORPHINE
  21. EPOETIN ALFA [Concomitant]
     Active Substance: ERYTHROPOIETIN
  22. VANCOMYCIN [Concomitant]
     Active Substance: VANCOMYCIN
     Dosage: 1 G, 2X/DAY ( EVERY 12 HOURS)
  23. LORAZEPAM. [Concomitant]
     Active Substance: LORAZEPAM
  24. CALCIUM ACETATE. [Concomitant]
     Active Substance: CALCIUM ACETATE
  25. DEXAMETHASONE. [Concomitant]
     Active Substance: DEXAMETHASONE

REACTIONS (1)
  - Leukopenia [Fatal]
